FAERS Safety Report 16246924 (Version 8)
Quarter: 2020Q2

REPORT INFORMATION
  Report Type: Spontaneous
  Country: NL (occurrence: NL)
  Receive Date: 20190427
  Receipt Date: 20200413
  Transmission Date: 20200713
  Serious: Yes (Life-Threatening, Hospitalization, Other)
  Sender: FDA-Public Use
  Company Number: NL-AUROBINDO-AUR-APL-2019-012734

PATIENT
  Age: 68 Year
  Sex: Male

DRUGS (11)
  1. IMATINIB. [Interacting]
     Active Substance: IMATINIB MESYLATE
     Indication: CHRONIC MYELOID LEUKAEMIA (IN REMISSION)
     Dosage: 400 MILLIGRAM, UNK
     Route: 065
     Dates: start: 201411, end: 201610
  2. SIMVASTATIN. [Interacting]
     Active Substance: SIMVASTATIN
     Dosage: UNK
     Route: 065
     Dates: start: 2007
  3. PREDNISONE. [Suspect]
     Active Substance: PREDNISONE
     Dosage: 5 MILLIGRAM, ONCE A DAY
     Route: 065
  4. IMATINIB. [Interacting]
     Active Substance: IMATINIB MESYLATE
     Indication: SYSTEMIC SCLERODERMA
     Dosage: UNK
     Route: 065
     Dates: start: 201701
  5. ALFACALCIDOL [Interacting]
     Active Substance: ALFACALCIDOL
     Indication: PRODUCT USED FOR UNKNOWN INDICATION
     Dosage: UNK
     Route: 065
  6. IMATINIB. [Interacting]
     Active Substance: IMATINIB MESYLATE
     Indication: CHRONIC MYELOID LEUKAEMIA
     Dosage: 20 MILLIGRAM, UNK
     Route: 065
     Dates: start: 201701
  7. SIMVASTATIN. [Interacting]
     Active Substance: SIMVASTATIN
     Indication: PRODUCT USED FOR UNKNOWN INDICATION
     Dosage: UNK
     Route: 065
     Dates: start: 2007
  8. PREDNISONE. [Suspect]
     Active Substance: PREDNISONE
     Indication: PRODUCT USED FOR UNKNOWN INDICATION
     Dosage: UNK, TAPERED OFF OVER A PERIOD OF THREE MONTHS TO A MAINTENANCE DOSE OF 5 MG
     Route: 065
  9. CLOPIDOGREL [Suspect]
     Active Substance: CLOPIDOGREL BISULFATE
     Indication: PRODUCT USED FOR UNKNOWN INDICATION
     Dosage: UNK
     Route: 065
     Dates: start: 201607
  10. IMATINIB. [Interacting]
     Active Substance: IMATINIB MESYLATE
     Dosage: UNK, REINTRODUCED
     Route: 065
  11. BUMETANIDE. [Suspect]
     Active Substance: BUMETANIDE
     Indication: PRODUCT USED FOR UNKNOWN INDICATION
     Dosage: UNK
     Route: 065
     Dates: start: 20160725

REACTIONS (9)
  - Muscular weakness [Recovered/Resolved]
  - Organising pneumonia [Recovered/Resolved]
  - Pulmonary toxicity [Recovered/Resolved]
  - Fatigue [Recovered/Resolved]
  - Toxicity to various agents [Recovered/Resolved]
  - Weight decreased [Recovered/Resolved]
  - Drug interaction [Recovered/Resolved]
  - Dyspnoea [Recovered/Resolved]
  - Interstitial lung disease [Recovered/Resolved]

NARRATIVE: CASE EVENT DATE: 201610
